FAERS Safety Report 7476489-0 (Version None)
Quarter: 2011Q2

REPORT INFORMATION
  Report Type: 
  Country: None (occurrence: None)
  Receive Date: 20110510
  Receipt Date: 20110510
  Transmission Date: 20111010
  Serious: Yes (Hospitalization)
  Sender: FDA-Public Use
  Company Number: None

PATIENT
  Sex: Male
  Weight: 195.2 kg

DRUGS (7)
  1. METHYLPREDNISOLONE [Suspect]
     Dosage: 2850 MG
  2. DAUNORUBICIN HCL [Suspect]
     Dosage: 79 MG
  3. VINCRISTINE SULFATE [Suspect]
     Dosage: 4 MG
  4. ALLOPURINOL [Suspect]
     Dosage: 6900 MG
  5. CYTARABINE [Suspect]
     Dosage: 70 MG
  6. PEG-L-ASPARAGINASE (K-H) [Suspect]
     Dosage: 7850 IU
  7. METHOTREXATE [Suspect]
     Dosage: 15 MG

REACTIONS (9)
  - DIZZINESS [None]
  - ESCHERICHIA INFECTION [None]
  - ABDOMINAL PAIN [None]
  - ANXIETY [None]
  - BLOOD CULTURE POSITIVE [None]
  - RESTLESSNESS [None]
  - PAIN IN EXTREMITY [None]
  - HYPOTENSION [None]
  - RESPIRATORY FAILURE [None]
